FAERS Safety Report 5914821-7 (Version None)
Quarter: 2008Q4

REPORT INFORMATION
  Report Type: 
  Country: None (occurrence: None)
  Receive Date: 20081010
  Receipt Date: 20080926
  Transmission Date: 20090506
  Serious: Yes (Disabling)
  Sender: FDA-Public Use
  Company Number: FR-ELI_LILLY_AND_COMPANY-FR200809004381

PATIENT
  Sex: Female
  Weight: 60 kg

DRUGS (2)
  1. GEMZAR [Suspect]
     Indication: NON-SMALL CELL LUNG CANCER
     Dosage: 1250 MG/M2, DAY 1 AND 8 OF 21-DAY CYCLE
     Route: 042
     Dates: start: 20080310, end: 20080605
  2. CISPLATIN [Concomitant]
     Indication: NON-SMALL CELL LUNG CANCER
     Dosage: UNK, DAY 1 OF 21-DAY CYCLE
     Route: 042
     Dates: start: 20080310, end: 20080501

REACTIONS (2)
  - MYELITIS [None]
  - RADIATION INJURY [None]
